FAERS Safety Report 17534981 (Version 5)
Quarter: 2021Q1

REPORT INFORMATION
  Report Type: Spontaneous
  Country: US (occurrence: US)
  Receive Date: 20200312
  Receipt Date: 20210215
  Transmission Date: 20210419
  Serious: Yes (Other)
  Sender: FDA-Public Use
  Company Number: US-AKCEA THERAPEUTICS-2020IS001000

PATIENT
  Age: 70 Year
  Sex: Female

DRUGS (2)
  1. ISSD (INTEGRATED SYRINGE SAFETY DEVICE) [Suspect]
     Active Substance: DEVICE
  2. TEGSEDI [Suspect]
     Active Substance: INOTERSEN SODIUM
     Indication: HEREDITARY NEUROPATHIC AMYLOIDOSIS
     Route: 058
     Dates: start: 20190215

REACTIONS (14)
  - Blood urine present [Unknown]
  - Blood creatinine increased [Unknown]
  - White blood cells urine positive [Unknown]
  - Bacterial test positive [Unknown]
  - Glomerular filtration rate decreased [Unknown]
  - Protein urine present [Unknown]
  - Urine abnormality [Unknown]
  - Pyuria [Unknown]
  - Urine protein/creatinine ratio increased [Unknown]
  - Renal function test abnormal [Unknown]
  - Red blood cells urine positive [Unknown]
  - Platelet count decreased [Unknown]
  - Urine leukocyte esterase positive [Unknown]
  - Nitrite urine present [Unknown]

NARRATIVE: CASE EVENT DATE: 20200903
